FAERS Safety Report 18272951 (Version 1)
Quarter: 2020Q3

REPORT INFORMATION
  Report Type: Spontaneous
  Country: CA (occurrence: CA)
  Receive Date: 20200916
  Receipt Date: 20200916
  Transmission Date: 20201103
  Serious: Yes (Death)
  Sender: FDA-Public Use
  Company Number: CA-ACCORD-200930

PATIENT
  Age: 62 Year
  Sex: Female
  Weight: 71 kg

DRUGS (16)
  1. PREGABALIN. [Concomitant]
     Active Substance: PREGABALIN
  2. COLCHICINE. [Concomitant]
     Active Substance: COLCHICINE
  3. DEPO?MEDROL [Concomitant]
     Active Substance: METHYLPREDNISOLONE ACETATE
     Dosage: SUSPENSION INTRA? ARTICULAR
  4. INDERAL LA [Concomitant]
     Active Substance: PROPRANOLOL HYDROCHLORIDE
     Dosage: CAPSULE, SUSTAINED RELEASE
  5. NYSTATIN. [Concomitant]
     Active Substance: NYSTATIN
     Dosage: MAGIC MOUTHWASH
  6. NYSTATIN. [Concomitant]
     Active Substance: NYSTATIN
  7. SINEQUAN [Suspect]
     Active Substance: DOXEPIN HYDROCHLORIDE
     Indication: AFFECTIVE DISORDER
     Dosage: 1 EVERY 1 DAYS
     Route: 048
  8. LITHIUM. [Concomitant]
     Active Substance: LITHIUM
  9. TECTA [Concomitant]
     Active Substance: PANTOPRAZOLE MAGNESIUM
  10. AMOXICILLIN. [Concomitant]
     Active Substance: AMOXICILLIN
  11. FOLINIC ACID [Concomitant]
     Active Substance: LEUCOVORIN
     Dosage: LIQUID INTRAVENOUS
  12. CLONAZEPAM. [Concomitant]
     Active Substance: CLONAZEPAM
  13. LEVOTHYROXINE. [Concomitant]
     Active Substance: LEVOTHYROXINE
  14. METHOTREXATE. [Concomitant]
     Active Substance: METHOTREXATE
  15. METHOTRIMEPRAZINE [Concomitant]
     Active Substance: LEVOMEPROMAZINE
  16. METHOTREXATE. [Suspect]
     Active Substance: METHOTREXATE
     Indication: RHEUMATOID ARTHRITIS
     Dosage: 1 EVERY 1 WEEKS
     Route: 048

REACTIONS (5)
  - Thrombocytopenia [Fatal]
  - Pancytopenia [Fatal]
  - Neutropenia [Fatal]
  - Enterocolitis [Fatal]
  - Multiple organ dysfunction syndrome [Fatal]
